FAERS Safety Report 4945113-0 (Version None)
Quarter: 2006Q1

REPORT INFORMATION
  Report Type: 
  Country: None (occurrence: None)
  Receive Date: 20060314
  Receipt Date: 20060314
  Transmission Date: 20060701
  Serious: Yes (Hospitalization, Other)
  Sender: FDA-Public Use
  Company Number: None

PATIENT
  Age: 20 Year
  Sex: Female

DRUGS (2)
  1. CORICIDIN MEDILETS (CHLORPHENIRAMINE MALEATE/ASPIRIN TABLETS [Suspect]
     Indication: NASOPHARYNGITIS
     Dosage: ONCE ORAL
     Route: 048
     Dates: start: 19610101, end: 19630101
  2. VITAMINS/MINERALS/DIETARY SUPPLEMENTS (NOS) [Concomitant]

REACTIONS (8)
  - ANAPHYLACTIC REACTION [None]
  - DYSPNOEA [None]
  - FALL [None]
  - FEELING ABNORMAL [None]
  - HYPERVENTILATION [None]
  - MOVEMENT DISORDER [None]
  - SPINAL DISORDER [None]
  - TREMOR [None]
